FAERS Safety Report 16308616 (Version 1)
Quarter: 2019Q2

REPORT INFORMATION
  Report Type: Spontaneous
  Country: JP (occurrence: JP)
  Receive Date: 20190514
  Receipt Date: 20190514
  Transmission Date: 20190711
  Serious: Yes (Hospitalization, Other)
  Sender: FDA-Public Use
  Company Number: JP-BRISTOL-MYERS SQUIBB COMPANY-BMS-2019-045764

PATIENT
  Age: 67 Year
  Sex: Female
  Weight: 40 kg

DRUGS (5)
  1. FUROSEMIDE. [Concomitant]
     Active Substance: FUROSEMIDE
     Indication: ASCITES
     Dosage: 20 MG, EVERYDAY
     Route: 048
     Dates: start: 20190319
  2. TRAMADOL HYDROCHLORIDE. [Concomitant]
     Active Substance: TRAMADOL HYDROCHLORIDE
     Indication: GASTRIC CANCER
     Dosage: 1 DF, Q8H
     Route: 048
     Dates: start: 20190319
  3. METHYCOBAL [Concomitant]
     Active Substance: METHYLCOBALAMIN
     Indication: ARTHROPATHY
     Dosage: 500 UG, Q8H
     Route: 048
     Dates: start: 20190306
  4. LOXOPROFEN [Concomitant]
     Active Substance: LOXOPROFEN
     Indication: GASTRIC CANCER
     Dosage: 60 MG, Q8H
     Route: 048
     Dates: start: 20190310
  5. OPDIVO [Suspect]
     Active Substance: NIVOLUMAB
     Indication: GASTRIC CANCER
     Dosage: 240 MG, Q2W
     Route: 041
     Dates: start: 20190326, end: 20190326

REACTIONS (2)
  - Gastric haemorrhage [Recovering/Resolving]
  - Malignant neoplasm progression [Unknown]

NARRATIVE: CASE EVENT DATE: 20190412
